FAERS Safety Report 16935774 (Version 1)
Quarter: 2019Q4

REPORT INFORMATION
  Report Type: Spontaneous
  Country: US (occurrence: US)
  Receive Date: 20191018
  Receipt Date: 20191018
  Transmission Date: 20200122
  Serious: No
  Sender: FDA-Public Use
  Company Number: US-BAYER-2019-181649

PATIENT
  Age: 89 Year
  Sex: Male
  Weight: 68 kg

DRUGS (2)
  1. MIRALAX [Suspect]
     Active Substance: POLYETHYLENE GLYCOL 3350
     Indication: GASTROINTESTINAL DISORDER
     Dosage: 1 DF, QD
     Route: 048
     Dates: start: 201909
  2. SENNOSIDE A+B [Concomitant]
     Active Substance: SENNOSIDES A AND B

REACTIONS (3)
  - Product use issue [None]
  - Contraindicated product administered [None]
  - Drug ineffective [Unknown]

NARRATIVE: CASE EVENT DATE: 201909
